FAERS Safety Report 10083454 (Version 1)
Quarter: 2014Q2

REPORT INFORMATION
  Report Type: Spontaneous
  Country: GB (occurrence: GB)
  Receive Date: 20140417
  Receipt Date: 20140417
  Transmission Date: 20141212
  Serious: Yes (Other)
  Sender: FDA-Public Use
  Company Number: GB-ELI_LILLY_AND_COMPANY-GB201404001575

PATIENT
  Age: 43 Year
  Sex: Female
  Weight: 63 kg

DRUGS (5)
  1. DULOXETINE HYDROCHLORIDE [Suspect]
     Indication: DEPRESSION
     Dosage: 60 MG, UNK
     Route: 048
     Dates: start: 20130214, end: 20140107
  2. AMITRIPTYLINE [Concomitant]
     Dosage: 20 MG, QD
  3. FERROUS FUMARATE [Concomitant]
     Dosage: 210 MG, TID
  4. MEBEVERINE [Concomitant]
     Dosage: 135 MG, TID
  5. RIGEVIDON                          /00022701/ [Concomitant]
     Dosage: UNK

REACTIONS (9)
  - Tinnitus [Unknown]
  - Coordination abnormal [Unknown]
  - Anger [Unknown]
  - Diarrhoea [Unknown]
  - Vertigo [Unknown]
  - Neck pain [Unknown]
  - Paraesthesia [Unknown]
  - Withdrawal syndrome [Not Recovered/Not Resolved]
  - Intentional product misuse [Unknown]
